FAERS Safety Report 19570531 (Version 2)
Quarter: 2021Q3

REPORT INFORMATION
  Report Type: Spontaneous
  Country: US (occurrence: US)
  Receive Date: 20210716
  Receipt Date: 20210902
  Transmission Date: 20211014
  Serious: No
  Sender: FDA-Public Use
  Company Number: US-ASTRAZENECA-2021A564857

PATIENT
  Sex: Male

DRUGS (2)
  1. MODERNA COVID?19 VACCINE [Concomitant]
     Active Substance: CX-024414
  2. BYDUREON BCISE [Suspect]
     Active Substance: EXENATIDE
     Indication: TYPE 2 DIABETES MELLITUS
     Dosage: 2.0MG UNKNOWN
     Route: 058

REACTIONS (7)
  - Device breakage [Unknown]
  - Injection site mass [Unknown]
  - Blood glucose increased [Unknown]
  - Injection site nodule [Not Recovered/Not Resolved]
  - Product use issue [Unknown]
  - Drug ineffective [Unknown]
  - Device leakage [Unknown]
